FAERS Safety Report 23727440 (Version 1)
Quarter: 2024Q2

REPORT INFORMATION
  Report Type: Other
  Country: GB (occurrence: GB)
  Receive Date: 20240410
  Receipt Date: 20240410
  Transmission Date: 20240716
  Serious: Yes (Other)
  Sender: FDA-Public Use
  Company Number: GB-MACLEODS PHARMACEUTICALS US LTD-MAC2024046810

PATIENT

DRUGS (1)
  1. DONEPEZIL HYDROCHLORIDE [Suspect]
     Active Substance: DONEPEZIL HYDROCHLORIDE
     Indication: Dementia
     Dosage: 5 MILLIGRAM, QD (START DATE: FEB 2024, STOP DATE: 07 MAR 2024)
     Route: 048

REACTIONS (2)
  - Orthostatic hypotension [Unknown]
  - Chest pain [Unknown]

NARRATIVE: CASE EVENT DATE: 20240307
